FAERS Safety Report 10014049 (Version 2)
Quarter: 2014Q1

REPORT INFORMATION
  Report Type: Spontaneous
  Country: US (occurrence: US)
  Receive Date: 20140317
  Receipt Date: 20140327
  Transmission Date: 20141002
  Serious: No
  Sender: FDA-Public Use
  Company Number: US-009507513-1403USA006958

PATIENT
  Age: 39 Year
  Sex: Female
  Weight: 53.52 kg

DRUGS (3)
  1. IMPLANON [Suspect]
     Indication: CONTRACEPTION
     Dosage: UNK
     Route: 059
     Dates: start: 20110310
  2. IMPLANON [Suspect]
     Indication: MUSCLE SPASMS
  3. LEVOTHYROXINE SODIUM [Concomitant]

REACTIONS (3)
  - Weight increased [Unknown]
  - Implant site pain [Unknown]
  - Incorrect drug administration duration [Unknown]
